FAERS Safety Report 5540742-8 (Version None)
Quarter: 2007Q4

REPORT INFORMATION
  Report Type: 
  Country: None (occurrence: None)
  Receive Date: 20071129
  Receipt Date: 20070817
  Transmission Date: 20080405
  Serious: Yes (Other)
  Sender: FDA-Public Use
  Company Number: US200708004267

PATIENT
  Age: 8 Year
  Sex: Male
  Weight: 31.7 kg

DRUGS (2)
  1. ZYPREXA ZYDIS [Suspect]
     Dosage: 2.5 MG,; 10 MG,
     Dates: start: 20060601
  2. FOCALIN [Concomitant]

REACTIONS (2)
  - ERECTION INCREASED [None]
  - WEIGHT INCREASED [None]
